FAERS Safety Report 14962234 (Version 2)
Quarter: 2018Q2

REPORT INFORMATION
  Report Type: Spontaneous
  Country: IN (occurrence: IN)
  Receive Date: 20180601
  Receipt Date: 20180615
  Transmission Date: 20180711
  Serious: Yes (Other)
  Sender: FDA-Public Use
  Company Number: IN-TORRENT-00001743

PATIENT
  Age: 45 Year
  Sex: Female

DRUGS (1)
  1. TELMISARTAN. [Suspect]
     Active Substance: TELMISARTAN
     Indication: HYPERTENSION
     Dosage: PRESCRIBED FOR THE PAST 1 YEAR

REACTIONS (4)
  - Renal impairment [Recovered/Resolved]
  - Hypoalbuminaemia [Unknown]
  - Sprue-like enteropathy [Recovered/Resolved]
  - Left ventricular hypertrophy [Unknown]
